FAERS Safety Report 5135491-4 (Version None)
Quarter: 2006Q4

REPORT INFORMATION
  Report Type: 
  Country: None (occurrence: None)
  Receive Date: 20061024
  Receipt Date: 20061024
  Transmission Date: 20070319
  Serious: Yes (Hospitalization)
  Sender: FDA-Public Use
  Company Number: None

PATIENT
  Age: 88 Year
  Sex: Male
  Weight: 69.4003 kg

DRUGS (11)
  1. DIGOXIN [Suspect]
     Indication: ATRIAL FIBRILLATION
     Dosage: 0.125 MG DAILY
     Route: 048
     Dates: start: 19980301, end: 20060810
  2. ATENOLOL [Suspect]
     Indication: ATRIAL FIBRILLATION
     Dosage: 25 MG DAILY
     Route: 048
     Dates: start: 20060324, end: 20060810
  3. COUMADIN [Concomitant]
  4. TRAMADOL HCL [Concomitant]
  5. AVASTIN [Concomitant]
  6. FUROSEMIDE [Concomitant]
  7. LISINOPRIL [Concomitant]
  8. SENNOSIDES [Concomitant]
  9. ALBUTEROL SULFATE AND IPRATROPIUM BROMIDE [Concomitant]
  10. NUTRITION SUPL ENSURE/VANILLA PWD [Concomitant]
  11. CALCIUM 250MG / VITAMIN D [Concomitant]

REACTIONS (2)
  - BRADYCARDIA [None]
  - PRESYNCOPE [None]
